FAERS Safety Report 4517996-X (Version None)
Quarter: 2004Q4

REPORT INFORMATION
  Report Type: 
  Country: None (occurrence: None)
  Receive Date: 20041130
  Receipt Date: 20041118
  Transmission Date: 20050328
  Serious: Yes (Hospitalization)
  Sender: FDA-Public Use
  Company Number: 2004233359FR

PATIENT
  Age: 3 Year
  Sex: Male

DRUGS (3)
  1. CEFPODOXIME PROXETIL TABLET (CEFPODOXINE PROXETIL) [Suspect]
     Indication: EAR INFECTION
     Dosage: 104 MG, DAILY, ORAL
     Route: 048
     Dates: start: 20040416, end: 20040421
  2. DOMPERIDONE (DOMPERIDONE) [Concomitant]
  3. BETAMETHASONE [Concomitant]

REACTIONS (12)
  - APLASTIC ANAEMIA [None]
  - EOSINOPHILIA [None]
  - EXCITABILITY [None]
  - FOOD ALLERGY [None]
  - GASTROINTESTINAL HAEMORRHAGE [None]
  - LOOSE STOOLS [None]
  - NORMOCHROMIC NORMOCYTIC ANAEMIA [None]
  - OESOPHAGITIS [None]
  - PLATELET COUNT INCREASED [None]
  - PRURITUS [None]
  - SPEECH DISORDER [None]
  - VOMITING [None]
